FAERS Safety Report 10168334 (Version 2)
Quarter: 2014Q2

REPORT INFORMATION
  Report Type: Report from Study
  Country: BR (occurrence: BR)
  Receive Date: 20140512
  Receipt Date: 20140515
  Transmission Date: 20141212
  Serious: Yes (Hospitalization, Other)
  Sender: FDA-Public Use
  Company Number: PHHY2014BR056876

PATIENT
  Age: 82 Year
  Sex: Female
  Weight: 54 kg

DRUGS (9)
  1. ACLASTA [Suspect]
     Indication: OSTEOPOROSIS
     Dosage: ONCE EVERY YEAR FROM 2013
     Route: 042
  2. CALDE [Concomitant]
     Indication: OSTEOPOROSIS
     Dosage: 2 DF, DAILY
  3. CHOLECALCIFEROL [Concomitant]
     Indication: OSTEOPOROSIS
     Dosage: 4 DRP, DAILY, FROM 2012
  4. RANITIDINE [Concomitant]
     Indication: GASTROINTESTINAL DISORDER
     Dosage: 2 DF, DAILY, FROM 2014
  5. TAPAZOL [Concomitant]
     Indication: THYROID DISORDER
     Dosage: 1 DF, DAILY, FROM 2012
  6. SELOZOK [Concomitant]
     Indication: ARRHYTHMIA
     Dosage: 1 DF, DAILY, FROM 2014
  7. XARELTO [Concomitant]
     Indication: ANTICOAGULANT THERAPY
     Dosage: 1 DF, DAILY, FROM 2014
  8. LIPITOR [Concomitant]
     Indication: BLOOD CHOLESTEROL ABNORMAL
     Dosage: 1 DF, DAILY, FROM 2014
  9. REMINYL [Concomitant]
     Indication: DEMENTIA ALZHEIMER^S TYPE
     Dosage: 1 DF, DAILY, FROM 2009

REACTIONS (1)
  - Cerebrovascular accident [Recovering/Resolving]
